FAERS Safety Report 12850033 (Version 1)
Quarter: 2016Q4

REPORT INFORMATION
  Report Type: Spontaneous
  Country: US (occurrence: US)
  Receive Date: 20161014
  Receipt Date: 20161014
  Transmission Date: 20170207
  Serious: No
  Sender: FDA-Public Use
  Company Number: US-ROCHE-1783255

PATIENT
  Sex: Female

DRUGS (1)
  1. ESBRIET [Suspect]
     Active Substance: PIRFENIDONE
     Indication: IDIOPATHIC PULMONARY FIBROSIS
     Dosage: MAINTENANCE DOSE OF 3 CAPSULES THREE TIMES PER DAY
     Route: 048
     Dates: start: 2016

REACTIONS (2)
  - Dizziness [Unknown]
  - Nausea [Unknown]
